FAERS Safety Report 20866953 (Version 1)
Quarter: 2022Q2

REPORT INFORMATION
  Report Type: Spontaneous
  Country: IE (occurrence: IE)
  Receive Date: 20220524
  Receipt Date: 20220524
  Transmission Date: 20220721
  Serious: Yes (Other)
  Sender: FDA-Public Use
  Company Number: IE-UCBSA-2022026125

PATIENT
  Age: 65 Year
  Sex: Female

DRUGS (6)
  1. CETIRIZINE [Suspect]
     Active Substance: CETIRIZINE HYDROCHLORIDE
     Indication: COVID-19
     Dosage: UNK
  2. ACETAMINOPHEN [Concomitant]
     Active Substance: ACETAMINOPHEN
     Indication: COVID-19
     Dosage: UNK, UNKNOWN DOSE
  3. ENOXAPARIN [Concomitant]
     Active Substance: ENOXAPARIN
     Indication: COVID-19
     Dosage: UNK, UNKNOWN DOSE
  4. ROSUVASTATIN [Concomitant]
     Active Substance: ROSUVASTATIN
     Indication: COVID-19
     Dosage: UNK, UNKNOWN DOSE
  5. CYCLIZINE [Concomitant]
     Active Substance: CYCLIZINE
     Indication: COVID-19
     Dosage: UNK, UNKNOWN DOSE
  6. LACTULOSE [Concomitant]
     Active Substance: LACTULOSE
     Indication: COVID-19
     Dosage: UNK, UNKNOWN DOSE

REACTIONS (2)
  - Electrocardiogram QT prolonged [Recovered/Resolved]
  - Off label use [Unknown]
